FAERS Safety Report 11448956 (Version 1)
Quarter: 2015Q3

REPORT INFORMATION
  Report Type: Spontaneous
  Country: US (occurrence: US)
  Receive Date: 20150902
  Receipt Date: 20150902
  Transmission Date: 20151125
  Serious: No
  Sender: FDA-Public Use
  Company Number: ALCN2015US005378

PATIENT
  Age: 75 Year
  Sex: Female

DRUGS (2)
  1. DUREZOL [Suspect]
     Active Substance: DIFLUPREDNATE
     Indication: INFLAMMATION
     Dosage: 1 GTT, 3X^S WEEK
     Route: 047
     Dates: start: 201309, end: 201401
  2. PREDNISOLONE ACETATE. [Suspect]
     Active Substance: PREDNISOLONE ACETATE
     Indication: INFLAMMATION
     Dosage: 1 GTT, 3X^S WEEK
     Route: 047
     Dates: start: 201309, end: 201401

REACTIONS (1)
  - Off label use [Unknown]
